FAERS Safety Report 8732990 (Version 4)
Quarter: 2013Q2

REPORT INFORMATION
  Report Type: Spontaneous
  Country: US (occurrence: US)
  Receive Date: 20120820
  Receipt Date: 20130429
  Transmission Date: 20140414
  Serious: Yes (Hospitalization)
  Sender: FDA-Public Use
  Company Number: US-B.I. PHARMACEUTICALS,INC./RIDGEFIELD-2012-BP-19156BP

PATIENT
  Age: 77 Year
  Sex: Female
  Weight: 65.77 kg

DRUGS (22)
  1. PRADAXA [Suspect]
     Indication: ANTICOAGULANT THERAPY
     Dosage: 150 MG
     Route: 048
     Dates: start: 20120127, end: 20120206
  2. ASPIRIN [Suspect]
     Dosage: 81 MG
     Dates: end: 20120214
  3. TIZANIDINE [Concomitant]
  4. FLUVIRIN [Concomitant]
  5. IBUPROFEN [Concomitant]
  6. FUROSEMIDE [Concomitant]
  7. LISINOPRIL [Concomitant]
  8. CLONIDINE [Concomitant]
  9. NIFEDICAL XL [Concomitant]
  10. SUCRALFATE [Concomitant]
  11. SIMVASTATIN [Concomitant]
  12. HYDROCODONE [Concomitant]
  13. AMOXICILLIN [Concomitant]
  14. NYSTATIN [Concomitant]
  15. METHYLPREDNISOLONE [Concomitant]
  16. CEFDINIR [Concomitant]
  17. MECLIZINE [Concomitant]
  18. DIAZEPAM [Concomitant]
  19. SYNTHROID [Concomitant]
  20. PROPANOLOL [Concomitant]
  21. LEVOTHYROXINE [Concomitant]
  22. CIPROFLOXACINE [Concomitant]

REACTIONS (3)
  - Gastrointestinal haemorrhage [Unknown]
  - Anxiety [Unknown]
  - Gastritis [Recovered/Resolved]
